FAERS Safety Report 12400841 (Version 2)
Quarter: 2016Q2

REPORT INFORMATION
  Report Type: Spontaneous
  Country: US (occurrence: US)
  Receive Date: 20160525
  Receipt Date: 20160525
  Transmission Date: 20160815
  Serious: No
  Sender: FDA-Public Use
  Company Number: US-SA-2015SA129241

PATIENT
  Age: 76 Year
  Sex: Female

DRUGS (2)
  1. SOLOSTAR [Concomitant]
     Active Substance: DEVICE
     Indication: TYPE 2 DIABETES MELLITUS
     Dates: start: 201501
  2. LANTUS SOLOSTAR [Suspect]
     Active Substance: INSULIN GLARGINE
     Indication: TYPE 2 DIABETES MELLITUS
     Dosage: TAKEN TIL:2105;NOT CAPTURED DUE TO AWARE RESTRICTION?0U QAM, 20U?QPM:DOSE
     Route: 065
     Dates: start: 201501

REACTIONS (3)
  - Drug administration error [Unknown]
  - Injection site pain [Unknown]
  - Flatulence [Unknown]
